FAERS Safety Report 8886601 (Version 1)
Quarter: 2012Q4

REPORT INFORMATION
  Report Type: 
  Country: US (occurrence: US)
  Receive Date: 20121105
  Receipt Date: 20121105
  Transmission Date: 20130627
  Serious: Yes (Other)
  Sender: FDA-Public Use
  Company Number: US-FRI-1000039949

PATIENT
  Age: 77 Year
  Sex: Female

DRUGS (1)
  1. INDOMETHACIN [Suspect]
     Indication: HEADACHE

REACTIONS (1)
  - Gastritis [Unknown]
